FAERS Safety Report 25906000 (Version 1)
Quarter: 2025Q4

REPORT INFORMATION
  Report Type: Report from Study
  Country: CO (occurrence: CO)
  Receive Date: 20251010
  Receipt Date: 20251010
  Transmission Date: 20260118
  Serious: Yes (Hospitalization)
  Sender: RECORDATI
  Company Number: CO-RECORDATI RARE DISEASES-2025006759

PATIENT
  Age: 19 Year
  Sex: Female
  Weight: 45 kg

DRUGS (2)
  1. PANHEMATIN [Suspect]
     Active Substance: HEMIN
     Indication: Porphyria acute
     Dosage: 1 DOSAGE FORM (VIAL), EVERY 24 HOURS (4 VIALS IN TOTAL)
     Route: 042
     Dates: start: 20221101
  2. PANHEMATIN [Suspect]
     Active Substance: HEMIN
     Dosage: 1 DOSAGE FORM (VIAL), EVERY 24 HOURS (4 VIALS IN TOTAL)
     Route: 042
     Dates: start: 20250904, end: 20250907

REACTIONS (1)
  - Abdominal mass [Recovered/Resolved]

NARRATIVE: CASE EVENT DATE: 20250904
